FAERS Safety Report 11014167 (Version 2)
Quarter: 2015Q2

REPORT INFORMATION
  Report Type: Spontaneous
  Country: US (occurrence: US)
  Receive Date: 20150412
  Receipt Date: 20150525
  Transmission Date: 20150821
  Serious: No
  Sender: FDA-Public Use
  Company Number: US-JNJFOC-20140701552

PATIENT
  Sex: Female

DRUGS (7)
  1. ATENOLOL. [Concomitant]
     Active Substance: ATENOLOL
  2. TRAMADOL [Concomitant]
     Active Substance: TRAMADOL
     Indication: PAIN
  3. VITAMIN B12 [Concomitant]
     Active Substance: CYANOCOBALAMIN
  4. BABY ASPIRIN [Concomitant]
     Active Substance: ASPIRIN
  5. OLYSIO [Suspect]
     Active Substance: SIMEPREVIR
     Indication: PRODUCT USED FOR UNKNOWN INDICATION
     Route: 065
     Dates: start: 2014
  6. SOVALDI [Suspect]
     Active Substance: SOFOSBUVIR
     Indication: PRODUCT USED FOR UNKNOWN INDICATION
     Route: 065
     Dates: start: 2014
  7. NORCO [Concomitant]
     Active Substance: ACETAMINOPHEN\HYDROCODONE BITARTRATE
     Indication: PAIN

REACTIONS (2)
  - Adverse drug reaction [Unknown]
  - Off label use [Not Recovered/Not Resolved]

NARRATIVE: CASE EVENT DATE: 2014
